FAERS Safety Report 9836009 (Version 2)
Quarter: 2015Q4

REPORT INFORMATION
  Report Type: Report from Study
  Country: US (occurrence: US)
  Receive Date: 20140122
  Receipt Date: 20151021
  Transmission Date: 20160305
  Serious: Yes (Death)
  Sender: FDA-Public Use
  Company Number: US-ROCHE-1337620

PATIENT
  Sex: Female

DRUGS (8)
  1. ERYTHROMYCIN. [Concomitant]
     Active Substance: ERYTHROMYCIN
     Dosage: 5MG/G 1/4 INCH STRIP QHS RIGHT EYE
     Route: 065
  2. LIDOCAINE. [Concomitant]
     Active Substance: LIDOCAINE
     Route: 065
  3. GLUCOPHAGE [Concomitant]
     Active Substance: METFORMIN HYDROCHLORIDE
     Route: 065
  4. PROPARACAINE [Concomitant]
     Active Substance: PROPARACAINE
     Route: 061
  5. ZESTRIL [Concomitant]
     Active Substance: LISINOPRIL
     Route: 065
  6. INSULIN [Concomitant]
     Active Substance: INSULIN NOS
  7. BETADINE [Concomitant]
     Active Substance: POVIDONE-IODINE
  8. LUCENTIS [Suspect]
     Active Substance: RANIBIZUMAB
     Indication: DIABETIC RETINOPATHY
     Dosage: 3.5MG/0.5ML
     Route: 050

REACTIONS (1)
  - Death [Fatal]
